FAERS Safety Report 9398451 (Version 2)
Quarter: 2013Q3

REPORT INFORMATION
  Report Type: Spontaneous
  Country: US (occurrence: US)
  Receive Date: 20130712
  Receipt Date: 20130801
  Transmission Date: 20140515
  Serious: No
  Sender: FDA-Public Use
  Company Number: US-009507513-1307USA005809

PATIENT
  Age: 25 Year
  Sex: Female
  Weight: 90.7 kg

DRUGS (5)
  1. SAPHRIS [Suspect]
     Indication: BIPOLAR DISORDER
     Dosage: 5 MG, UNK
     Route: 060
     Dates: start: 20130515
  2. SAPHRIS [Suspect]
     Dosage: 10 MG, HS
     Route: 060
     Dates: start: 20130516, end: 20130612
  3. REMERON [Suspect]
     Route: 048
  4. LAMICTAL [Concomitant]
     Dosage: 200 G, BID
  5. ADDERALL TABLETS [Concomitant]
     Dosage: 50 MG, QAM

REACTIONS (2)
  - Libido decreased [Recovered/Resolved]
  - Anorgasmia [Recovered/Resolved]
